FAERS Safety Report 9009703 (Version 1)
Quarter: 2013Q1

REPORT INFORMATION
  Report Type: Spontaneous
  Country: US (occurrence: US)
  Receive Date: 20130111
  Receipt Date: 20130111
  Transmission Date: 20140127
  Serious: Yes (Hospitalization)
  Sender: FDA-Public Use
  Company Number: US-009507513-1301USA003511

PATIENT
  Age: 86 Year
  Sex: Male

DRUGS (10)
  1. SINGULAIR [Suspect]
     Indication: HYPERTONIC BLADDER
     Route: 048
  2. CHINESE TRADITIONAL MEDICINE [Suspect]
     Indication: HYPERTENSION
     Dosage: 5 G, UNK
     Route: 048
  3. NORVASC [Suspect]
     Indication: MALAISE
     Dosage: 10 MG, UNK
     Route: 048
  4. VESICARE [Suspect]
     Indication: OSTEOARTHRITIS
     Route: 048
  5. CELECOXIB [Suspect]
     Dosage: 200 MG, UNK
     Route: 048
  6. SPIRIVA [Suspect]
     Dosage: INHALATION
     Route: 055
  7. TAMSULOSIN HYDROCHLORIDE [Suspect]
     Route: 048
  8. HOKUNALIN [Concomitant]
     Indication: ASTHMA
  9. SELBEX [Concomitant]
     Indication: BENIGN PROSTATIC HYPERPLASIA
  10. DICLOFENAC SODIUM [Concomitant]
     Indication: CHRONIC OBSTRUCTIVE PULMONARY DISEASE

REACTIONS (1)
  - Cardiac failure [Unknown]
